FAERS Safety Report 4319064-9 (Version None)
Quarter: 2004Q1

REPORT INFORMATION
  Report Type: 
  Country: None (occurrence: None)
  Receive Date: 20040316
  Receipt Date: 20040304
  Transmission Date: 20041129
  Serious: Yes (Death, Life-Threatening, Hospitalization)
  Sender: FDA-Public Use
  Company Number: IT-JNJFOC-20040301246

PATIENT
  Age: 63 Year
  Sex: Female

DRUGS (8)
  1. REMICADE [Suspect]
     Indication: RHEUMATOID ARTHRITIS
     Dosage: 200 MG, 1 IN 8 WEEK, INTRAVENOUS
     Route: 042
     Dates: start: 20030327, end: 20031218
  2. METHOTREXATE [Suspect]
     Indication: DRUG USE FOR UNKNOWN INDICATION
     Dosage: 10 MG, 1 IN 1 WEEK
     Dates: start: 20010101, end: 20040101
  3. MEDROL [Concomitant]
  4. LANOXIN [Concomitant]
  5. OMEPRAZEN (OMEPRAZOLE) [Concomitant]
  6. VIOXX [Concomitant]
  7. ASPIRIN [Concomitant]
  8. FLUSPIRAL (FLUTICASONE PROPIONATE) SPRAY [Concomitant]

REACTIONS (4)
  - ACUTE RESPIRATORY FAILURE [None]
  - CHRONIC OBSTRUCTIVE AIRWAYS DISEASE EXACERBATED [None]
  - PULMONARY FIBROSIS [None]
  - RETROPERITONEAL HAEMORRHAGE [None]
